FAERS Safety Report 6258363-0 (Version None)
Quarter: 2009Q3

REPORT INFORMATION
  Report Type: 
  Country: None (occurrence: None)
  Receive Date: 20090707
  Receipt Date: 20090625
  Transmission Date: 20100115
  Serious: No
  Sender: FDA-Public Use
  Company Number: US-ELI_LILLY_AND_COMPANY-US200602002067

PATIENT
  Sex: Female
  Weight: 97.052 kg

DRUGS (18)
  1. ZYPREXA [Suspect]
     Indication: SCHIZOPHRENIA
     Dosage: 10 MG, UNK
     Dates: start: 19990303, end: 19990830
  2. HALOPERIDOL [Concomitant]
     Dosage: 5 MG, UNK
     Dates: start: 19990422, end: 20030901
  3. MIRTAZAPINE [Concomitant]
     Dosage: 30 MG, UNK
     Dates: start: 19990311, end: 20031101
  4. MIRTAZAPINE [Concomitant]
     Dosage: 45 MG, UNK
     Dates: start: 20000417
  5. ATENOLOL [Concomitant]
     Dosage: 100 MG, UNK
     Dates: start: 19990303, end: 20050501
  6. ATENOLOL [Concomitant]
     Dosage: 50 MG, UNK
     Dates: start: 20001124
  7. HYDROCHLOROTHIAZIDE [Concomitant]
     Dosage: 25 MG, UNK
     Dates: start: 19990303
  8. SEROQUEL [Concomitant]
     Dosage: 100 MG, UNK
     Dates: start: 19990930, end: 19991213
  9. SEROQUEL [Concomitant]
     Dosage: 25 MG, UNK
     Dates: start: 19991214
  10. SEROQUEL [Concomitant]
     Dosage: 300 MG, UNK
     Dates: start: 20010914
  11. SEROQUEL [Concomitant]
     Dosage: 100 MG, UNK
     Dates: start: 20010919
  12. DEPAKOTE [Concomitant]
     Dosage: 250 MG, UNK
     Dates: start: 20001012
  13. DEPAKOTE [Concomitant]
     Dosage: 500 MG, UNK
     Dates: start: 20050822
  14. GEODON [Concomitant]
     Dosage: 20 MG, UNK
     Dates: start: 20030703
  15. GEODON [Concomitant]
     Dosage: 40 MG, UNK
     Dates: start: 20031109
  16. GEODON [Concomitant]
     Dosage: 80 MG, UNK
     Dates: start: 20040104
  17. GEODON [Concomitant]
     Dosage: 60 MG, UNK
     Dates: start: 20050501
  18. COGENTIN [Concomitant]
     Dosage: UNK, 2/D

REACTIONS (12)
  - ALANINE AMINOTRANSFERASE INCREASED [None]
  - ASPARTATE AMINOTRANSFERASE DECREASED [None]
  - BLOOD CHOLESTEROL INCREASED [None]
  - BLOOD CREATININE INCREASED [None]
  - BLOOD GLUCOSE INCREASED [None]
  - BLOOD TRIGLYCERIDES INCREASED [None]
  - BLOOD UREA INCREASED [None]
  - CHEST PAIN [None]
  - DIABETES MELLITUS [None]
  - HAEMATOCRIT DECREASED [None]
  - HYPOGLYCAEMIA [None]
  - TYPE 2 DIABETES MELLITUS [None]
